FAERS Safety Report 23573337 (Version 3)
Quarter: 2024Q4

REPORT INFORMATION
  Report Type: Report from Study
  Country: CA (occurrence: CA)
  Receive Date: 20240228
  Receipt Date: 20241220
  Transmission Date: 20250114
  Serious: Yes (Other)
  Sender: TAKEDA
  Company Number: CA-TAKEDA-2020TUS037659

PATIENT
  Age: 39 Year
  Sex: Female

DRUGS (10)
  1. VEDOLIZUMAB [Suspect]
     Active Substance: VEDOLIZUMAB
     Indication: Crohn^s disease
     Dosage: 300 MILLIGRAM
  2. VEDOLIZUMAB [Suspect]
     Active Substance: VEDOLIZUMAB
     Dosage: 300 MILLIGRAM
  3. VEDOLIZUMAB [Suspect]
     Active Substance: VEDOLIZUMAB
     Dosage: 300 MILLIGRAM
  4. VEDOLIZUMAB [Suspect]
     Active Substance: VEDOLIZUMAB
     Dosage: 300 MILLIGRAM
  5. VEDOLIZUMAB [Suspect]
     Active Substance: VEDOLIZUMAB
     Dosage: 300 MILLIGRAM
  6. UNISOM SLEEPTABS [Concomitant]
     Active Substance: DOXYLAMINE SUCCINATE
     Indication: Sleep disorder
     Dosage: UNK
  7. PENTASA [Concomitant]
     Active Substance: MESALAMINE
     Dosage: UNK
  8. VITAMIN D [Concomitant]
     Active Substance: VITAMIN D NOS
     Dosage: UNK
  9. CALCIUM [Concomitant]
     Active Substance: CALCIUM
     Dosage: UNK
  10. ZOPICLONE [Concomitant]
     Active Substance: ZOPICLONE
     Dosage: UNK

REACTIONS (9)
  - Menstrual disorder [Unknown]
  - Crohn^s disease [Unknown]
  - Endometriosis [Unknown]
  - Menstruation irregular [Recovered/Resolved]
  - Gastrointestinal infection [Recovered/Resolved]
  - Gingival bleeding [Unknown]
  - Pelvic discomfort [Unknown]
  - Vaginal haemorrhage [Unknown]
  - Gastroenteritis viral [Recovering/Resolving]

NARRATIVE: CASE EVENT DATE: 20200709
